FAERS Safety Report 18296995 (Version 1)
Quarter: 2020Q3

REPORT INFORMATION
  Report Type: Spontaneous
  Country: PL (occurrence: PL)
  Receive Date: 20200922
  Receipt Date: 20200922
  Transmission Date: 20201103
  Serious: Yes (Other)
  Sender: FDA-Public Use
  Company Number: PL-JNJFOC-20200922057

PATIENT
  Sex: Female

DRUGS (4)
  1. RISPOLEPT CONSTA [Suspect]
     Active Substance: RISPERIDONE
  2. RISPOLEPT CONSTA [Suspect]
     Active Substance: RISPERIDONE
  3. RISPOLEPT CONSTA [Suspect]
     Active Substance: RISPERIDONE
     Indication: PRODUCT USED FOR UNKNOWN INDICATION
     Route: 065
  4. RISPOLEPT CONSTA [Suspect]
     Active Substance: RISPERIDONE

REACTIONS (2)
  - Hallucination, auditory [Unknown]
  - Persecutory delusion [Unknown]
